FAERS Safety Report 6417606-0 (Version None)
Quarter: 2009Q4

REPORT INFORMATION
  Report Type: 
  Country: None (occurrence: None)
  Receive Date: 20091026
  Receipt Date: 20091013
  Transmission Date: 20100525
  Serious: Yes (Disabling)
  Sender: FDA-Public Use
  Company Number: ADR37602009

PATIENT
  Age: 76 Year
  Sex: Female

DRUGS (3)
  1. SIMVASTATIN [Suspect]
     Indication: BLOOD CHOLESTEROL INCREASED
     Dosage: 1 DF, ORAL
     Route: 048
     Dates: start: 20060701, end: 20061101
  2. ASPIRIN [Concomitant]
  3. METFORMIN HCL [Concomitant]

REACTIONS (9)
  - EYE SWELLING [None]
  - FEELING ABNORMAL [None]
  - LICHEN PLANUS [None]
  - LIP SWELLING [None]
  - PAIN IN EXTREMITY [None]
  - PURULENT DISCHARGE [None]
  - RASH ERYTHEMATOUS [None]
  - SKIN EXFOLIATION [None]
  - TONGUE DISORDER [None]
